FAERS Safety Report 17004840 (Version 1)
Quarter: 2019Q4

REPORT INFORMATION
  Report Type: Spontaneous
  Country: US (occurrence: US)
  Receive Date: 20191107
  Receipt Date: 20191107
  Transmission Date: 20200122
  Serious: Yes (Hospitalization)
  Sender: FDA-Public Use
  Company Number: US-MYLANLABS-2019M1105997

PATIENT
  Age: 90 Year
  Sex: Female

DRUGS (1)
  1. IPRATROPIUM/SALBUTAMOL [Suspect]
     Active Substance: ALBUTEROL\IPRATROPIUM BROMIDE
     Indication: PNEUMONIA
     Dosage: 2.5MG PER 3ML INHALATION

REACTIONS (1)
  - Lactic acidosis [Recovering/Resolving]
